FAERS Safety Report 8850942 (Version 1)
Quarter: 2012Q4

REPORT INFORMATION
  Report Type: 
  Country: US (occurrence: US)
  Receive Date: 20121019
  Receipt Date: 20121019
  Transmission Date: 20130627
  Serious: No
  Sender: FDA-Public Use
  Company Number: US-PFIZER INC-2012256274

PATIENT

DRUGS (4)
  1. CELEBREX [Suspect]
     Indication: PAIN
     Dosage: 200mg 1 per
  2. CELEBREX [Suspect]
     Dosage: 200mg 2 per
  3. DILANTIN [Suspect]
     Dosage: UNK
  4. PREMARIN [Suspect]
     Dosage: UNK

REACTIONS (2)
  - Drug ineffective [Not Recovered/Not Resolved]
  - Pain [Not Recovered/Not Resolved]
